FAERS Safety Report 5258449-3 (Version None)
Quarter: 2007Q1

REPORT INFORMATION
  Report Type: 
  Country: None (occurrence: None)
  Receive Date: 20070308
  Receipt Date: 20070227
  Transmission Date: 20070707
  Serious: Yes (Other)
  Sender: FDA-Public Use
  Company Number: US-ELI_LILLY_AND_COMPANY-US200702005492

PATIENT
  Sex: Male

DRUGS (1)
  1. ZYPREXA [Suspect]
     Indication: SCHIZOPHRENIA
     Dosage: 20 MG, 2/D
     Dates: start: 20030101

REACTIONS (4)
  - COLON CANCER [None]
  - HOSTILITY [None]
  - PRESCRIBED OVERDOSE [None]
  - TENSION [None]
